FAERS Safety Report 7958736-1 (Version None)
Quarter: 2011Q4

REPORT INFORMATION
  Report Type: 
  Country: None (occurrence: None)
  Receive Date: 20111206
  Receipt Date: 20111122
  Transmission Date: 20120403
  Serious: Yes (Hospitalization)
  Sender: FDA-Public Use
  Company Number: CA-JNJFOC-20111201405

PATIENT
  Sex: Male
  Weight: 67 kg

DRUGS (5)
  1. TYLENOL W/ CODEINE NO. 3 [Concomitant]
     Indication: PAIN
  2. IMURAN [Concomitant]
     Route: 048
  3. REMICADE [Suspect]
     Indication: CROHN'S DISEASE
     Route: 042
     Dates: start: 20100122
  4. IMODIUM [Concomitant]
  5. VITAMIN B-12 [Concomitant]

REACTIONS (3)
  - ENTEROSTOMY [None]
  - ABDOMINAL HERNIA [None]
  - INGUINAL HERNIA [None]
